FAERS Safety Report 6681317-7 (Version None)
Quarter: 2010Q2

REPORT INFORMATION
  Report Type: 
  Country: None (occurrence: None)
  Receive Date: 20100414
  Receipt Date: 20100305
  Transmission Date: 20101027
  Serious: Yes (Other)
  Sender: FDA-Public Use
  Company Number: US-JNJFOC-20100206443

PATIENT
  Age: 26 Year
  Sex: Female
  Weight: 49.9 kg

DRUGS (1)
  1. TYLENOL COLD MULTI-SYMPTOM DAYTIME COOL BURST [Suspect]
     Indication: INFLUENZA LIKE ILLNESS
     Dosage: 2 CAPLETS ONCE TOTAL.
     Route: 048

REACTIONS (4)
  - DIZZINESS [None]
  - LOSS OF CONSCIOUSNESS [None]
  - MALAISE [None]
  - VOMITING [None]
